FAERS Safety Report 11684159 (Version 1)
Quarter: 2015Q4

REPORT INFORMATION
  Report Type: Spontaneous
  Country: FR (occurrence: FR)
  Receive Date: 20151029
  Receipt Date: 20151029
  Transmission Date: 20160304
  Serious: Yes (Hospitalization)
  Sender: FDA-Public Use
  Company Number: FR-ASTRAZENECA-2015SF02745

PATIENT
  Age: 63 Year
  Sex: Male

DRUGS (7)
  1. OXYCONTIN [Concomitant]
     Active Substance: OXYCODONE HYDROCHLORIDE
     Route: 048
  2. CAPRELSA [Suspect]
     Active Substance: VANDETANIB
     Indication: MEDULLARY THYROID CANCER
     Route: 048
     Dates: start: 201501, end: 201509
  3. ALFACALCIDOL [Concomitant]
     Active Substance: ALFACALCIDOL
     Route: 048
  4. PANTOPRAZOLE [Concomitant]
     Active Substance: PANTOPRAZOLE SODIUM
     Route: 048
  5. LEVOTHYROX [Concomitant]
     Active Substance: LEVOTHYROXINE
     Route: 048
  6. CACIT VIT D3 [Concomitant]
     Route: 048
  7. SPECIAFOLDINE [Concomitant]
     Active Substance: FOLIC ACID
     Route: 048

REACTIONS (2)
  - Tendon rupture [Unknown]
  - Interstitial lung disease [Unknown]

NARRATIVE: CASE EVENT DATE: 20150901
